FAERS Safety Report 9497325 (Version 2)
Quarter: 2013Q3

REPORT INFORMATION
  Report Type: Spontaneous
  Country: US (occurrence: US)
  Receive Date: 20130904
  Receipt Date: 20130918
  Transmission Date: 20140515
  Serious: No
  Sender: FDA-Public Use
  Company Number: US-JNJFOC-20130814440

PATIENT
  Age: 60 Year
  Sex: Male
  Weight: 74.84 kg

DRUGS (1)
  1. DURAGESIC [Suspect]
     Indication: POST HERPETIC NEURALGIA
     Dosage: ONCE EVERY 3 DAYS
     Route: 062
     Dates: start: 201204

REACTIONS (3)
  - Poor quality drug administered [Recovered/Resolved]
  - Product quality issue [Unknown]
  - Product outer packaging issue [Unknown]
